FAERS Safety Report 6998805-6 (Version None)
Quarter: 2010Q3

REPORT INFORMATION
  Report Type: 
  Country: None (occurrence: None)
  Receive Date: 20100920
  Receipt Date: 20100511
  Transmission Date: 20110219
  Serious: Yes (Hospitalization)
  Sender: FDA-Public Use
  Company Number: US-ASTRAZENECA-2010SE22007

PATIENT
  Age: 16491 Day
  Sex: Female

DRUGS (5)
  1. SEROQUEL [Suspect]
     Dosage: 100 MG TWO. THREE TIMES A DAY
     Route: 048
     Dates: start: 20060322
  2. REMERON [Concomitant]
     Route: 048
     Dates: start: 20060322
  3. INDERAL [Concomitant]
     Route: 048
     Dates: start: 20060322
  4. LASIX [Concomitant]
     Dosage: 40 MG TWO. TWICE A DAY AS NEEDED
     Route: 048
     Dates: start: 20060322
  5. PRANDIN [Concomitant]
     Route: 048
     Dates: start: 20060322

REACTIONS (1)
  - ASTHMA [None]
